FAERS Safety Report 24011035 (Version 1)
Quarter: 2024Q2

REPORT INFORMATION
  Report Type: Report from Study
  Country: US (occurrence: None)
  Receive Date: 20240625
  Receipt Date: 20240625
  Transmission Date: 20240716
  Serious: Yes (Other)
  Sender: FDA-Public Use
  Company Number: 2024A145256

PATIENT
  Sex: Female

DRUGS (1)
  1. SAPHNELO [Suspect]
     Active Substance: ANIFROLUMAB\ANIFROLUMAB-FNIA
     Indication: Systemic lupus erythematosus
     Dosage: 300MG/2ML
     Route: 042
     Dates: start: 202312

REACTIONS (10)
  - Nephrolithiasis [Unknown]
  - Pneumonia [Unknown]
  - Aortic aneurysm [Unknown]
  - Weight decreased [Unknown]
  - Feeling abnormal [Unknown]
  - Asthenia [Unknown]
  - Feeling cold [Unknown]
  - Slow speech [Unknown]
  - Systemic lupus erythematosus [Unknown]
  - Product dose omission issue [Unknown]
